FAERS Safety Report 9885817 (Version 2)
Quarter: 2014Q1

REPORT INFORMATION
  Report Type: Report from Study
  Country: DE (occurrence: BE)
  Receive Date: 20140210
  Receipt Date: 20140210
  Transmission Date: 20141002
  Serious: Yes (Death, Hospitalization, Other)
  Sender: FDA-Public Use
  Company Number: DE-ACTELION-A-US2011-49649

PATIENT
  Age: 51 Year
  Sex: Female

DRUGS (10)
  1. VENTAVIS [Suspect]
     Indication: PRODUCT USED FOR UNKNOWN INDICATION
     Dosage: UNK
     Route: 055
     Dates: start: 20110502
  2. TRACLEER [Concomitant]
     Indication: PULMONARY ARTERIAL HYPERTENSION
     Route: 048
  3. SPIRONOLACTONE [Concomitant]
  4. ASAFLOW [Concomitant]
  5. LANOXIN [Concomitant]
  6. ORGAMETRIL [Concomitant]
  7. SILDENAFIL CITRATE [Concomitant]
  8. SIPRALEXA [Concomitant]
  9. MAREVAN [Concomitant]
  10. STRUMAZOL [Concomitant]

REACTIONS (3)
  - Lung transplant [Fatal]
  - Syncope [Unknown]
  - Fatigue [Unknown]
